FAERS Safety Report 8214222-5 (Version None)
Quarter: 2012Q1

REPORT INFORMATION
  Report Type: 
  Country: None (occurrence: None)
  Receive Date: 20120316
  Receipt Date: 20120227
  Transmission Date: 20120608
  Serious: No
  Sender: FDA-Public Use
  Company Number: JP-JNJFOC-20120306418

PATIENT
  Age: 72 Year
  Sex: Female

DRUGS (3)
  1. REMICADE [Suspect]
     Indication: RHEUMATOID ARTHRITIS
     Route: 042
     Dates: start: 20091224, end: 20091224
  2. REMICADE [Suspect]
     Route: 042
     Dates: start: 20080501
  3. REMICADE [Suspect]
     Route: 042
     Dates: start: 20100409, end: 20100409

REACTIONS (1)
  - HERPES ZOSTER [None]
